FAERS Safety Report 8366722-5 (Version None)
Quarter: 2012Q2

REPORT INFORMATION
  Report Type: 
  Country: None (occurrence: None)
  Receive Date: 20120517
  Receipt Date: 20120514
  Transmission Date: 20120825
  Serious: No
  Sender: FDA-Public Use
  Company Number: US-PFIZER INC-2012117018

PATIENT
  Sex: Female

DRUGS (2)
  1. PROTONIX [Suspect]
     Indication: CARDIAC DISORDER
     Dosage: UNK
     Route: 042
  2. PROTONIX [Suspect]
     Indication: OFF LABEL USE

REACTIONS (5)
  - ERUCTATION [None]
  - DIARRHOEA [None]
  - DYSPEPSIA [None]
  - OESOPHAGEAL PAIN [None]
  - DYSPHONIA [None]
